FAERS Safety Report 7895174-4 (Version None)
Quarter: 2011Q4

REPORT INFORMATION
  Report Type: 
  Country: None (occurrence: None)
  Receive Date: 20111106
  Receipt Date: 20110823
  Transmission Date: 20120403
  Serious: No
  Sender: FDA-Public Use
  Company Number: US-AMGEN-USASP2011038109

PATIENT
  Age: 58 Year
  Sex: Female
  Weight: 91.156 kg

DRUGS (14)
  1. IBUPROFEN [Concomitant]
  2. LANSOPRAZOLE [Concomitant]
     Dosage: 30 MG, UNK
  3. TAZORAC [Concomitant]
     Dosage: UNK
  4. ASACOL [Concomitant]
     Dosage: 400 MG, UNK
  5. SEROQUEL [Concomitant]
     Dosage: 200 MG, UNK
  6. GABAPENTIN [Concomitant]
     Dosage: 100 MG, UNK
  7. TAMSULOSIN HCL [Concomitant]
     Dosage: 0.4 MG, UNK
  8. CLOBETASOL [Concomitant]
     Dosage: UNK
  9. TRAZODONE HYDROCHLORIDE [Concomitant]
     Dosage: 50 MG, UNK
  10. PAROXETINE HCL [Concomitant]
     Dosage: 10 MG, UNK
  11. ENBREL [Suspect]
     Indication: PSORIASIS
     Dosage: 50 MG, 2 TIMES/WK FOR 3 MONTHS THEN DECREASE TO ONCE A WEEK
     Route: 058
     Dates: start: 20110707
  12. AMBIEN [Concomitant]
     Dosage: 5 MG, UNK
  13. LISINOPRIL [Concomitant]
     Dosage: 10 MG, UNK
  14. ZANAFLEX [Concomitant]
     Dosage: 2 MG, UNK

REACTIONS (5)
  - INJECTION SITE DISCOMFORT [None]
  - INJECTION SITE HAEMATOMA [None]
  - WRONG TECHNIQUE IN DRUG USAGE PROCESS [None]
  - INJECTION SITE PAIN [None]
  - INJECTION SITE HAEMORRHAGE [None]
